FAERS Safety Report 5102735-4 (Version None)
Quarter: 2006Q3

REPORT INFORMATION
  Report Type: 
  Country: None (occurrence: None)
  Receive Date: 20060907
  Receipt Date: 20060823
  Transmission Date: 20061208
  Serious: Yes (Death)
  Sender: FDA-Public Use
  Company Number: 112291ISR

PATIENT
  Sex: Male

DRUGS (1)
  1. AMIODARONE HCL [Suspect]
     Indication: GOUT
     Dosage: ORAL
     Route: 048
     Dates: start: 20050401, end: 20060414

REACTIONS (4)
  - ACUTE MYOCARDIAL INFARCTION [None]
  - LEFT VENTRICULAR FAILURE [None]
  - PNEUMONIA [None]
  - PNEUMONITIS [None]
